FAERS Safety Report 8030756-0 (Version None)
Quarter: 2012Q1

REPORT INFORMATION
  Report Type: 
  Country: None (occurrence: None)
  Receive Date: 20120109
  Receipt Date: 20120105
  Transmission Date: 20120608
  Serious: Yes (Other)
  Sender: FDA-Public Use
  Company Number: PHHY2012ES000833

PATIENT
  Age: 66 Year
  Sex: Female

DRUGS (1)
  1. DIOVAN [Suspect]
     Indication: HYPERTENSION
     Dosage: 160 MG, UNK
     Dates: start: 20110101

REACTIONS (7)
  - ORTHOSTATIC HYPOTENSION [None]
  - FALL [None]
  - SLEEP DISORDER [None]
  - WOUND [None]
  - RASH GENERALISED [None]
  - ADRENAL ADENOMA [None]
  - PRURITUS [None]
